FAERS Safety Report 6111590-5 (Version None)
Quarter: 2009Q1

REPORT INFORMATION
  Report Type: 
  Country: None (occurrence: None)
  Receive Date: 20090311
  Receipt Date: 20090219
  Transmission Date: 20090719
  Serious: Yes (Hospitalization)
  Sender: FDA-Public Use
  Company Number: US-MERCK-0902USA00584

PATIENT
  Age: 16 Year
  Sex: Female

DRUGS (9)
  1. SINGULAIR [Suspect]
     Indication: ASTHMA
     Route: 048
     Dates: start: 20060628, end: 20070101
  2. SINGULAIR [Suspect]
     Route: 048
  3. ASMANEX TWISTHALER [Concomitant]
     Route: 065
  4. ALBUTEROL [Concomitant]
     Route: 065
  5. SINGULAIR [Suspect]
     Route: 048
  6. VITAMINS (UNSPECIFIED) [Concomitant]
     Route: 065
  7. XOPENEX [Concomitant]
  8. NEXIUM [Concomitant]
  9. PRILOSEC [Suspect]
     Indication: GASTROOESOPHAGEAL REFLUX DISEASE
     Route: 048

REACTIONS (10)
  - ANXIETY [None]
  - DEPRESSION [None]
  - FATIGUE [None]
  - HALLUCINATION [None]
  - INFECTIOUS MONONUCLEOSIS [None]
  - INSOMNIA [None]
  - OROPHARYNGEAL PAIN [None]
  - POST-TRAUMATIC STRESS DISORDER [None]
  - RESTLESSNESS [None]
  - SUICIDAL IDEATION [None]
